FAERS Safety Report 5832921-7 (Version None)
Quarter: 2008Q3

REPORT INFORMATION
  Report Type: 
  Country: None (occurrence: None)
  Receive Date: 20080804
  Receipt Date: 20080715
  Transmission Date: 20090109
  Serious: No
  Sender: FDA-Public Use
  Company Number: US-BOEHRINGER INGELHEIM GMBH, GERMANY-2008-BP-11048BP

PATIENT
  Sex: Female

DRUGS (2)
  1. ZANTAC 150 [Suspect]
     Route: 048
     Dates: start: 20080714, end: 20080715
  2. PEPTO-BISMOL [Suspect]
     Route: 048

REACTIONS (1)
  - FAECES DISCOLOURED [None]
